FAERS Safety Report 9931238 (Version 1)
Quarter: 2014Q1

REPORT INFORMATION
  Report Type: Spontaneous
  Country: DE (occurrence: DE)
  Receive Date: 20140228
  Receipt Date: 20140228
  Transmission Date: 20141002
  Serious: Yes (Hospitalization)
  Sender: FDA-Public Use
  Company Number: DE-ROCHE-1356378

PATIENT
  Sex: Female

DRUGS (5)
  1. RANIBIZUMAB [Suspect]
     Indication: AGE-RELATED MACULAR DEGENERATION
     Dosage: AS NEEDED
     Route: 050
     Dates: start: 20120719
  2. RANIBIZUMAB [Suspect]
     Dosage: AS NEEDED
     Route: 050
     Dates: start: 20130221
  3. AMLODIPINE [Concomitant]
     Route: 065
     Dates: start: 2002
  4. L-THYROXINE [Concomitant]
     Route: 065
     Dates: start: 2003
  5. DEKRISTOL [Concomitant]
     Route: 065
     Dates: start: 2009

REACTIONS (1)
  - Retinal haemorrhage [Recovering/Resolving]
